FAERS Safety Report 8154690-0 (Version None)
Quarter: 2012Q1

REPORT INFORMATION
  Report Type: 
  Country: None (occurrence: None)
  Receive Date: 20120221
  Receipt Date: 20120213
  Transmission Date: 20120608
  Serious: Yes (Hospitalization, Other)
  Sender: FDA-Public Use
  Company Number: US-PFIZER INC-2012040951

PATIENT
  Age: 9 Month
  Sex: Male
  Weight: 8.6 kg

DRUGS (2)
  1. VENLAFAXINE HCL [Suspect]
     Dosage: 150 MG, SINGLE
     Route: 048
  2. FLUORIDE [Concomitant]
     Dosage: 0.25 MG DAILY

REACTIONS (9)
  - TREMOR [None]
  - PRURITUS [None]
  - ACCIDENTAL DRUG INTAKE BY CHILD [None]
  - MYDRIASIS [None]
  - DRUG SCREEN POSITIVE [None]
  - PARKINSONIAN REST TREMOR [None]
  - DEPRESSED LEVEL OF CONSCIOUSNESS [None]
  - RASH ERYTHEMATOUS [None]
  - SEDATION [None]
